FAERS Safety Report 9222031 (Version 1)
Quarter: 2013Q1

REPORT INFORMATION
  Report Type: Spontaneous
  Country: US (occurrence: None)
  Receive Date: 20120907
  Receipt Date: 20120907
  Transmission Date: 20140127
  Serious: No
  Sender: FDA-Public Use
  Company Number: TH-2012-00318

PATIENT
  Sex: Male

DRUGS (21)
  1. EGRIFTA [Suspect]
     Indication: LIPODYSTROPHY ACQUIRED
     Route: 058
  2. CYCLOBENZAPRINE (CYCLOBENZAPRINE) [Concomitant]
  3. FLURAZEPAM (FLURAZEPAM0 [Concomitant]
  4. PROAIR [Concomitant]
  5. CYANOCOBALAMIN (CYANOCOBALAMIN) [Concomitant]
  6. FLUTICASONE PROPIONATE (FLUTICASONE PROPIONATE) [Concomitant]
  7. LORAZEPAM (LORAZEPAM) [Concomitant]
  8. LEXIVA (FOSAMPRENAVIR) [Concomitant]
  9. NORVIR (PHENTERMINE RESIN) [Concomitant]
  10. VIRAMUNE XR (NEVIRAPINE) [Concomitant]
  11. TESTOSTERONE CIPIONATE (TESTOSTERONE CIPIONATE) [Concomitant]
  12. INSURE (NUTRIENTS NOS) [Concomitant]
  13. NEXIUM (ESOMEPRAZOLE MAGNESIUM) [Concomitant]
  14. WELLBUTRIN (BUPROPION) [Concomitant]
  15. ADVIAR DISKUS (FLUTICASONE PROPIONATE, SALMETEROL XINAFOATE) [Concomitant]
  16. VANLAFAXINE HCL (VENLAFAXINE HYDROCHLORIDE) [Concomitant]
  17. TAMULOSIN HCL (TAMSULOSIN HYDROCHLORIDE) [Concomitant]
  18. SPIRONOLACTONE (SPIRONOLACTONE) [Concomitant]
  19. FUROSEMIDE (FUROSEMIDE) [Concomitant]
  20. SWROQUEL (QUETIAPINE) [Concomitant]
  21. VIREAD (TENOFOVIR) [Concomitant]

REACTIONS (2)
  - Blood chloride decreased [None]
  - Carbon dioxide increased [None]
